FAERS Safety Report 19655170 (Version 1)
Quarter: 2021Q3

REPORT INFORMATION
  Report Type: Report from Study
  Country: GB (occurrence: GB)
  Receive Date: 20210803
  Receipt Date: 20210803
  Transmission Date: 20211014
  Serious: Yes (Death)
  Sender: FDA-Public Use
  Company Number: GB-BAXTER-2021BAX022682

PATIENT

DRUGS (23)
  1. SYNTHAMIN [Suspect]
     Active Substance: AMINO ACIDS
     Dosage: FORMULATION 2 WITHOUT SMOFLIPID
     Route: 065
  2. SMOFLIPID [Suspect]
     Active Substance: FISH OIL\MEDIUM-CHAIN TRIGLYCERIDES\OLIVE OIL\SOYBEAN OIL
     Indication: PARENTERAL NUTRITION
     Dosage: FORMULATION 1, 200MA/MT
     Route: 065
  3. WATER FOR TPN FORMULATIONS [Suspect]
     Active Substance: WATER
     Dosage: FORMULATION 2 WITHOUT SMOFLIPID
     Route: 065
  4. SOLIVITO N [Suspect]
     Active Substance: VITAMINS
     Indication: PARENTERAL NUTRITION
     Dosage: FORMULATION 1 WITH SMOFLIPID
     Route: 065
  5. SODIUM GLYCEROPHOSPHATE [Suspect]
     Active Substance: SODIUM GLYCEROPHOSPHATE
     Dosage: FORMULATION 2 WITHOUT SMOFLIPID
     Route: 065
  6. GLUCOSE 50% W/V CONCENTRATE FOR SOLUTION FOR INFUSION [Suspect]
     Active Substance: DEXTROSE
     Dosage: FORMULATION 2 WITHOUT SMOFLIPID
     Route: 065
  7. SODIUM CHLORIDE. [Suspect]
     Active Substance: SODIUM CHLORIDE
     Indication: PARENTERAL NUTRITION
     Dosage: FORMULATION 1 WITH SMOFLIPID
     Route: 065
  8. CALCIUM CHLORIDE. [Suspect]
     Active Substance: CALCIUM CHLORIDE
     Dosage: FORMULATION 2 WITHOUT SMOFLIPID, 1MMOVML
     Route: 065
  9. SODIUM GLYCEROPHOSPHATE [Suspect]
     Active Substance: SODIUM GLYCEROPHOSPHATE
     Indication: PARENTERAL NUTRITION
     Dosage: FORMULATION 1 WITH SMOFLIPID
     Route: 065
  10. SYNTHAMIN [Suspect]
     Active Substance: AMINO ACIDS
     Indication: PARENTERAL NUTRITION
     Dosage: FORMULATION 1 WITH SMOFLIPID
     Route: 065
  11. WATER FOR TPN FORMULATIONS [Suspect]
     Active Substance: WATER
     Indication: PARENTERAL NUTRITION
     Dosage: FORMULATION 1 WITH SMOFLIPID
     Route: 065
  12. MAGNESIUM SULPHATE [Suspect]
     Active Substance: MAGNESIUM SULFATE
     Indication: PARENTERAL NUTRITION
     Dosage: FORMULATION 1 WITH SMOFLIPID
     Route: 065
  13. GLUCOSE 50% W/V CONCENTRATE FOR SOLUTION FOR INFUSION [Suspect]
     Active Substance: DEXTROSE
     Indication: PARENTERAL NUTRITION
     Dosage: FORMULATION 1 WITH SMOFLIPID
     Route: 065
  14. NUTRYELT CONCENTRATE FOR SOLUTION FOR INFUSION [Suspect]
     Active Substance: IRON\MINERALS\POTASSIUM IOD\SODIUM FLUORIDE\SODIUM MOLYBDATE\SODIUM SELENITE\ZINC
     Dosage: FORMULATION 2 WITHOUT SMOFLIPID
     Route: 065
  15. POTASSIUM CHLORIDE. [Suspect]
     Active Substance: POTASSIUM CHLORIDE
     Indication: PARENTERAL NUTRITION
     Dosage: FORMULATION 1 WITH SMOFLIPID
     Route: 065
  16. ASCORBIC ACID. [Suspect]
     Active Substance: ASCORBIC ACID
     Indication: PARENTERAL NUTRITION
     Route: 065
  17. SODIUM CHLORIDE. [Suspect]
     Active Substance: SODIUM CHLORIDE
     Dosage: FORMULATION 2 WITHOUT SMOFLIPID
     Route: 065
  18. POTASSIUM CHLORIDE. [Suspect]
     Active Substance: POTASSIUM CHLORIDE
     Dosage: FORMULATION 2 WITHOUT SMOFLIPID
     Route: 065
  19. CALCIUM CHLORIDE. [Suspect]
     Active Substance: CALCIUM CHLORIDE
     Indication: PARENTERAL NUTRITION
     Dosage: FORMULATION 1 WITH SMOFLIPID, 1MMOVML
     Route: 065
  20. NUTRYELT CONCENTRATE FOR SOLUTION FOR INFUSION [Suspect]
     Active Substance: IRON\MINERALS\POTASSIUM IOD\SODIUM FLUORIDE\SODIUM MOLYBDATE\SODIUM SELENITE\ZINC
     Indication: PARENTERAL NUTRITION
     Dosage: FORMULATION 1 WITH SMOFLIPID
     Route: 065
  21. CERNEVIT [Suspect]
     Active Substance: VITAMINS
     Indication: PARENTERAL NUTRITION
     Route: 065
  22. MAGNESIUM SULPHATE [Suspect]
     Active Substance: MAGNESIUM SULFATE
     Dosage: FORMULATION 2 WITHOUT SMOFLIPID
     Route: 065
  23. VITALIPID N ADULT [Suspect]
     Active Substance: ERGOCALCIFEROL\PHYTONADIONE\RETINOL\TOCOPHEROL
     Indication: PARENTERAL NUTRITION
     Dosage: FORMULATION 1 WITH SMOFLIPID
     Route: 065

REACTIONS (1)
  - Death [Fatal]
